FAERS Safety Report 17140097 (Version 3)
Quarter: 2020Q2

REPORT INFORMATION
  Report Type: Spontaneous
  Country: IL (occurrence: IL)
  Receive Date: 20191211
  Receipt Date: 20200401
  Transmission Date: 20200713
  Serious: Yes (Hospitalization, Other)
  Sender: FDA-Public Use
  Company Number: IL-AMGEN-ISRSP2019202401

PATIENT
  Age: 86 Year
  Sex: Female

DRUGS (14)
  1. ASA [Concomitant]
     Active Substance: ASPIRIN
     Dosage: 100 MILLIGRAM X 1
  2. CRESTOR [Concomitant]
     Active Substance: ROSUVASTATIN CALCIUM
     Dosage: 20 MILLIGRAM X 1
  3. LOTAN [Concomitant]
     Dosage: 25 MG X 1
  4. LANTON [Concomitant]
     Dosage: 30 MILLIGRAM X 1
  5. NORMALAX [Concomitant]
     Dosage: UNK UNK, AS NECESSARY
  6. MONONIT [Concomitant]
     Dosage: 80 MG X 2
  7. ALDACTONE [Concomitant]
     Active Substance: SPIRONOLACTONE
     Dosage: 12.5 MILLIGRAM X 1
  8. PROLIA [Suspect]
     Active Substance: DENOSUMAB
     Indication: OSTEOPOROSIS
     Dosage: UNK
     Route: 058
     Dates: start: 20190715
  9. CLEXANE [Concomitant]
     Active Substance: ENOXAPARIN SODIUM
     Dosage: UNK
  10. NEOBLOCK [Concomitant]
     Dosage: 50 MG X 1
  11. LYRICA [Concomitant]
     Active Substance: PREGABALIN
     Dosage: 150 + 75MG
  12. NORVASC [Concomitant]
     Active Substance: AMLODIPINE BESYLATE
     Dosage: 5 MILLIGRAM X 1
  13. FUSID [Concomitant]
     Dosage: 40 MILLIGRAM X 2, ONCE EVERY WEEK TO TWO WEEKS
  14. SL B12 [Concomitant]

REACTIONS (9)
  - Femoral neck fracture [Unknown]
  - Urinary incontinence [Unknown]
  - Constipation [Unknown]
  - Fall [Unknown]
  - Hip fracture [Unknown]
  - Traumatic fracture [Unknown]
  - Cardiac failure congestive [Not Recovered/Not Resolved]
  - Post procedural inflammation [Recovering/Resolving]
  - Haemorrhoidal haemorrhage [Unknown]

NARRATIVE: CASE EVENT DATE: 201911
